APPROVED DRUG PRODUCT: OXYCODONE HYDROCHLORIDE
Active Ingredient: OXYCODONE HYDROCHLORIDE
Strength: 5MG/5ML
Dosage Form/Route: SOLUTION;ORAL
Application: N200535 | Product #002 | TE Code: AA
Applicant: GENUS LIFE SCIENCES INC
Approved: Aug 22, 2013 | RLD: Yes | RS: No | Type: RX